FAERS Safety Report 13570684 (Version 1)
Quarter: 2017Q2

REPORT INFORMATION
  Report Type: Report from Study
  Country: FR (occurrence: FR)
  Receive Date: 20170523
  Receipt Date: 20170523
  Transmission Date: 20170830
  Serious: Yes (Hospitalization)
  Sender: FDA-Public Use
  Company Number: FR-ROCHE-1907049

PATIENT
  Age: 74 Year
  Sex: Female

DRUGS (15)
  1. OBINUTUZUMAB [Suspect]
     Active Substance: OBINUTUZUMAB
     Indication: NON-HODGKIN^S LYMPHOMA
     Dosage: 107.1429MG
     Route: 042
     Dates: start: 20161026, end: 20170110
  2. FOLINORAL [Concomitant]
     Active Substance: LEUCOVORIN CALCIUM
     Indication: INFECTION PROPHYLAXIS
     Route: 065
     Dates: start: 20160601
  3. TOPALGIC (FRANCE) [Concomitant]
     Active Substance: TRAMADOL
     Indication: TUMOUR PAIN
     Route: 065
     Dates: start: 20160101
  4. TOPALGIC (FRANCE) [Concomitant]
     Active Substance: TRAMADOL
     Route: 065
     Dates: start: 20161018
  5. CARBOPLATIN. [Concomitant]
     Active Substance: CARBOPLATIN
  6. HIZENTRA [Concomitant]
     Active Substance: HUMAN IMMUNOGLOBULIN G
     Route: 058
     Dates: start: 20160601
  7. OBINUTUZUMAB [Suspect]
     Active Substance: OBINUTUZUMAB
     Indication: DIFFUSE LARGE B-CELL LYMPHOMA
     Route: 042
     Dates: start: 20161214
  8. CC-122 [Suspect]
     Active Substance: INVESTIGATIONAL PRODUCT
     Indication: DIFFUSE LARGE B-CELL LYMPHOMA
     Dosage: DAYS 1-5
     Route: 048
     Dates: start: 20170201
  9. ORACILLIN [Concomitant]
     Active Substance: PENICILLIN V BENZATHINE
     Indication: INFECTION
     Dosage: 1MU
     Route: 048
     Dates: start: 20160601
  10. ZELITREX [Concomitant]
     Active Substance: VALACYCLOVIR HYDROCHLORIDE
     Route: 048
     Dates: start: 20160601
  11. OBINUTUZUMAB [Suspect]
     Active Substance: OBINUTUZUMAB
     Route: 042
     Dates: start: 20170201
  12. VITAMIN A [Concomitant]
     Active Substance: VITAMIN A
     Indication: PROPHYLAXIS
     Route: 047
     Dates: start: 20161116
  13. BACTRIM [Concomitant]
     Active Substance: SULFAMETHOXAZOLE\TRIMETHOPRIM
     Indication: INFECTION PROPHYLAXIS
     Route: 048
     Dates: start: 20161109
  14. CELLTOP [Concomitant]
     Active Substance: ETOPOSIDE
     Indication: DIFFUSE LARGE B-CELL LYMPHOMA
     Route: 065
  15. CC-122 [Suspect]
     Active Substance: INVESTIGATIONAL PRODUCT
     Indication: NON-HODGKIN^S LYMPHOMA
     Dosage: 2.8571, DAYS 1-5?REVEIVED MOST RECENT DOSE ON 08/JAN/2017
     Route: 048
     Dates: start: 20161019

REACTIONS (1)
  - Neuropathy peripheral [Recovered/Resolved]

NARRATIVE: CASE EVENT DATE: 20170123
